FAERS Safety Report 11788904 (Version 1)
Quarter: 2015Q4

REPORT INFORMATION
  Report Type: Spontaneous
  Country: US (occurrence: US)
  Receive Date: 20151201
  Receipt Date: 20151201
  Transmission Date: 20160305
  Serious: Yes (Other)
  Sender: FDA-Public Use
  Company Number: US-ACTAVIS-2015-18448

PATIENT
  Age: 74 Year
  Sex: Female

DRUGS (1)
  1. PERMETHRIN (AMALLC) [Suspect]
     Active Substance: PERMETHRIN
     Indication: LICE INFESTATION
     Dosage: UNK UNK, SINGLE
     Route: 061
     Dates: start: 20150712, end: 20150712

REACTIONS (3)
  - Chemical burn of skin [Recovered/Resolved]
  - Wound drainage [Recovered/Resolved]
  - Skin haemorrhage [Recovered/Resolved]

NARRATIVE: CASE EVENT DATE: 20150712
